FAERS Safety Report 4383695-0 (Version None)
Quarter: 2004Q2

REPORT INFORMATION
  Report Type: 
  Country: None (occurrence: None)
  Receive Date: 20040623
  Receipt Date: 20040421
  Transmission Date: 20050107
  Serious: Yes (Other)
  Sender: FDA-Public Use
  Company Number: US-BRISTOL-MYERS SQUIBB COMPANY-12565842

PATIENT
  Age: 81 Year
  Sex: Male

DRUGS (1)
  1. SERZONE [Suspect]
     Dosage: DURATION: ^OVER 2 YEARS^
     Dates: start: 20010814, end: 20031226

REACTIONS (14)
  - AMNESIA [None]
  - ANOREXIA [None]
  - ASTHENIA [None]
  - CARDIAC PACEMAKER INSERTION [None]
  - CHILLS [None]
  - CONFUSIONAL STATE [None]
  - COORDINATION ABNORMAL [None]
  - DIZZINESS [None]
  - DYSGEUSIA [None]
  - DYSPHAGIA [None]
  - FOOD AVERSION [None]
  - SPEECH DISORDER [None]
  - STAPHYLOCOCCAL INFECTION [None]
  - WEIGHT DECREASED [None]
